FAERS Safety Report 4612607-7 (Version None)
Quarter: 2005Q1

REPORT INFORMATION
  Report Type: 
  Country: None (occurrence: None)
  Receive Date: 20050318
  Receipt Date: 20050310
  Transmission Date: 20050727
  Serious: Yes (Hospitalization)
  Sender: FDA-Public Use
  Company Number: PHFR2005GB01187

PATIENT

DRUGS (1)
  1. NEORAL [Suspect]
     Dosage: 100 MG, BID
     Route: 048

REACTIONS (1)
  - CIRCULATORY COLLAPSE [None]
